FAERS Safety Report 8573579-6 (Version None)
Quarter: 2012Q3

REPORT INFORMATION
  Report Type: 
  Country: None (occurrence: None)
  Receive Date: 20120806
  Receipt Date: 20120727
  Transmission Date: 20120928
  Serious: Yes (Hospitalization)
  Sender: FDA-Public Use
  Company Number: US-ELI_LILLY_AND_COMPANY-US201202001118

PATIENT
  Sex: Female

DRUGS (4)
  1. ATORVASTATIN [Concomitant]
     Dosage: UNK
  2. TRAMADOL HCL [Concomitant]
     Dosage: UNK
  3. DELTAZINE [Concomitant]
     Dosage: UNK
  4. FORTEO [Suspect]
     Indication: OSTEOPOROSIS

REACTIONS (8)
  - INJECTION SITE HAEMATOMA [None]
  - FATIGUE [None]
  - INTESTINAL PERFORATION [None]
  - PERITONITIS [None]
  - MALAISE [None]
  - ASTHENIA [None]
  - FLATULENCE [None]
  - BACK PAIN [None]
